FAERS Safety Report 8016451 (Version 7)
Quarter: 2014Q3

REPORT INFORMATION
  Report Type: Report from Study
  Country: JP (occurrence: JP)
  Receive Date: 20110630
  Receipt Date: 20140825
  Transmission Date: 20150326
  Serious: Yes (Life-Threatening)
  Sender: FDA-Public Use
  Company Number: JP-PFIZER INC-2011140531

PATIENT
  Age: 12 Week
  Sex: Male
  Weight: 4.1 kg

DRUGS (5)
  1. DORNER [Suspect]
     Active Substance: BERAPROST SODIUM
     Indication: HYPOXIA
  2. PHENOBAL [Concomitant]
     Active Substance: PHENOBARBITAL
     Indication: SEDATION
     Dosage: 15 MG, DAILY
     Route: 048
     Dates: start: 20080722, end: 20080920
  3. REVATIO [Suspect]
     Active Substance: SILDENAFIL CITRATE
     Indication: PULMONARY ARTERIAL HYPERTENSION
     Dosage: 0.5 MG, 3X/DAY
     Route: 048
     Dates: start: 20080916, end: 20080920
  4. DORNER [Suspect]
     Active Substance: BERAPROST SODIUM
     Indication: PULMONARY HYPERTENSION
     Dosage: 15 UG, DAILY
     Route: 048
     Dates: start: 20080725, end: 20080922
  5. REVATIO [Suspect]
     Active Substance: SILDENAFIL CITRATE
     Dosage: 1.0 MG, 3X/DAY
     Route: 048
     Dates: start: 20080921, end: 20080922

REACTIONS (1)
  - Interstitial lung disease [Recovered/Resolved]

NARRATIVE: CASE EVENT DATE: 20080922
